FAERS Safety Report 7547083-8 (Version None)
Quarter: 2011Q2

REPORT INFORMATION
  Report Type: 
  Country: None (occurrence: None)
  Receive Date: 20110607
  Receipt Date: 20110523
  Transmission Date: 20111010
  Serious: Yes (Hospitalization)
  Sender: FDA-Public Use
  Company Number: 2011073593

PATIENT
  Age: 56 Year
  Sex: Male

DRUGS (4)
  1. VENTOLIN [Concomitant]
  2. FERROUS SULFATE TAB [Concomitant]
  3. DALTEPARIN SODIUM [Suspect]
     Indication: LUNG NEOPLASM MALIGNANT
     Dosage: 5000 IU, 1X/DAY, SUBCUTANEOUS
     Route: 058
     Dates: start: 20110317
  4. CHAMPAX (VARENICLINE TARTRATE) [Concomitant]

REACTIONS (3)
  - HAEMOGLOBIN DECREASED [None]
  - CEREBRAL INFARCTION [None]
  - CONFUSIONAL STATE [None]
